FAERS Safety Report 21351887 (Version 1)
Quarter: 2022Q3

REPORT INFORMATION
  Report Type: Spontaneous
  Country: DE (occurrence: DE)
  Receive Date: 20220920
  Receipt Date: 20220920
  Transmission Date: 20221026
  Serious: Yes (Other)
  Sender: FDA-Public Use
  Company Number: DE-JNJFOC-20220932596

PATIENT
  Sex: Male

DRUGS (1)
  1. EDURANT [Suspect]
     Active Substance: RILPIVIRINE HYDROCHLORIDE
     Indication: HIV infection
     Route: 048

REACTIONS (1)
  - Gastrointestinal tube insertion [Unknown]
